FAERS Safety Report 24618326 (Version 1)
Quarter: 2024Q4

REPORT INFORMATION
  Report Type: Spontaneous
  Country: US (occurrence: None)
  Receive Date: 20241113
  Receipt Date: 20241113
  Transmission Date: 20250115
  Serious: Yes (unspecified)
  Sender: Public
  Company Number: None

PATIENT
  Age: 70 Year
  Sex: Male
  Weight: 126 kg

DRUGS (2)
  1. CEFAZOLIN SODIUM [Suspect]
     Active Substance: CEFAZOLIN SODIUM
     Indication: Device related infection
     Route: 042
     Dates: start: 20240531, end: 20240613
  2. AMPICILLIN TRIHYDRATE\SULBACTAM SODIUM [Suspect]
     Active Substance: AMPICILLIN TRIHYDRATE\SULBACTAM SODIUM

REACTIONS (2)
  - Neutropenia [None]
  - Therapy cessation [None]

NARRATIVE: CASE EVENT DATE: 20240616
